FAERS Safety Report 7075030-4 (Version None)
Quarter: 2010Q4

REPORT INFORMATION
  Report Type: 
  Country: None (occurrence: None)
  Receive Date: 20101029
  Receipt Date: 20100125
  Transmission Date: 20110411
  Serious: No
  Sender: FDA-Public Use
  Company Number: US-WYE-H13189810

PATIENT
  Age: 70 Year
  Sex: Male
  Weight: 81.72 kg

DRUGS (5)
  1. ADVIL PM [Suspect]
     Indication: INSOMNIA
     Dosage: 1 CAPLET X1
     Route: 048
     Dates: start: 20100122, end: 20100122
  2. VERAPAMIL [Concomitant]
  3. ASPIRIN [Concomitant]
  4. SIMVASTATIN [Concomitant]
  5. LISINOPRIL [Concomitant]

REACTIONS (2)
  - AMNESIA [None]
  - HANGOVER [None]
